FAERS Safety Report 5340021-8 (Version None)
Quarter: 2007Q2

REPORT INFORMATION
  Report Type: 
  Country: None (occurrence: None)
  Receive Date: 20070529
  Receipt Date: 20070514
  Transmission Date: 20071010
  Serious: Yes (Other)
  Sender: FDA-Public Use
  Company Number: DE-GDP-0714931

PATIENT
  Age: 27 Year
  Sex: Female

DRUGS (1)
  1. METVIXIA [Suspect]
     Indication: SKIN PAPILLOMA
     Dosage: NI TP
     Route: 061
     Dates: start: 20070430, end: 20070430

REACTIONS (3)
  - BURNS SECOND DEGREE [None]
  - SKIN HYPERPIGMENTATION [None]
  - SWELLING [None]
